FAERS Safety Report 6242728-7 (Version None)
Quarter: 2009Q2

REPORT INFORMATION
  Report Type: 
  Country: None (occurrence: None)
  Receive Date: 20090617
  Receipt Date: 20080627
  Transmission Date: 20091009
  Serious: No
  Sender: FDA-Public Use
  Company Number: 276873

PATIENT
  Age: 59 Year
  Sex: Female

DRUGS (1)
  1. LEVEMIR [Suspect]
     Indication: INSULIN-REQUIRING TYPE 2 DIABETES MELLITUS
     Dosage: 26 U, QD, SUBCUTANEOUS ; 32 U, QD, SUBCUTANEOUS
     Route: 058
     Dates: start: 20080305

REACTIONS (2)
  - BLOOD GLUCOSE INCREASED [None]
  - HEADACHE [None]
